FAERS Safety Report 13731802 (Version 2)
Quarter: 2017Q3

REPORT INFORMATION
  Report Type: Spontaneous
  Country: US (occurrence: US)
  Receive Date: 20170707
  Receipt Date: 20170712
  Transmission Date: 20171127
  Serious: No
  Sender: FDA-Public Use
  Company Number: US-PFIZER INC-2017258358

PATIENT
  Age: 56 Year
  Sex: Female
  Weight: 75.3 kg

DRUGS (6)
  1. XELJANZ [Suspect]
     Active Substance: TOFACITINIB CITRATE
     Indication: RHEUMATOID ARTHRITIS
     Dosage: 15 MG, TWICE A DAY (THREE 5 MG TABLET, TWICE PER DAY)
     Route: 048
     Dates: start: 20170625
  2. XELJANZ [Suspect]
     Active Substance: TOFACITINIB CITRATE
     Indication: FIBROMYALGIA
     Dosage: 5 MG, 2X/DAY
     Dates: start: 201706
  3. PRAVASTATIN. [Concomitant]
     Active Substance: PRAVASTATIN
     Indication: BLOOD CHOLESTEROL
     Dosage: 20 MG, 1X/DAY(AT NIGHT)
     Route: 048
  4. PREDNISONE. [Suspect]
     Active Substance: PREDNISONE
     Indication: RHEUMATOID ARTHRITIS
     Dosage: 50 MG, UNK
  5. MECLIZINE [Concomitant]
     Active Substance: MECLIZINE HYDROCHLORIDE
     Indication: VERTIGO
     Dosage: 12.5 MG, 1X/DAY (HALF OF A 25MG TABLET)
     Route: 048
  6. PREDNISONE. [Suspect]
     Active Substance: PREDNISONE
     Indication: FIBROMYALGIA
     Dosage: 15 MG, 1X/DAY
     Route: 048
     Dates: start: 20170606

REACTIONS (8)
  - Disturbance in attention [Unknown]
  - Feeling abnormal [Not Recovered/Not Resolved]
  - Memory impairment [Unknown]
  - Rash macular [Not Recovered/Not Resolved]
  - Product use issue [Unknown]
  - Fatigue [Not Recovered/Not Resolved]
  - Hot flush [Unknown]
  - Myalgia [Not Recovered/Not Resolved]

NARRATIVE: CASE EVENT DATE: 201706
